FAERS Safety Report 19212801 (Version 2)
Quarter: 2021Q2

REPORT INFORMATION
  Report Type: Spontaneous
  Country: JP (occurrence: JP)
  Receive Date: 20210504
  Receipt Date: 20210615
  Transmission Date: 20210717
  Serious: No
  Sender: FDA-Public Use
  Company Number: JP-OTSUKA-2021_014725

PATIENT
  Age: 38 Year
  Sex: Female

DRUGS (5)
  1. CYCLOPHOSPHAMIDE MONOHYDRATE [Suspect]
     Active Substance: CYCLOPHOSPHAMIDE
     Indication: TRANSPLANT
     Dosage: 60 MG/KG, DAILY DOSE
     Route: 065
  2. CYTARABINE. [Suspect]
     Active Substance: CYTARABINE
     Indication: TRANSPLANT
     Dosage: 4 G/M2, DAILY DOSE
     Route: 065
  3. BUSULFEX [Suspect]
     Active Substance: BUSULFAN
     Indication: TRANSPLANT
     Dosage: 3.2 MG/KG, DAILY DOSE
     Route: 042
  4. RANIMUSTINE [Suspect]
     Active Substance: RANIMUSTINE
     Indication: TRANSPLANT
     Dosage: 250 MG/M2, DAILY DOSE
     Route: 065
  5. ANTITHYMOCYTE IMMUNOGLOBULIN (RABBIT) [Suspect]
     Active Substance: LAPINE T-LYMPHOCYTE IMMUNE GLOBULIN
     Indication: TRANSPLANT
     Dosage: 2.5 MG/KG, DAILY DOSE
     Route: 065

REACTIONS (1)
  - Incorrect product administration duration [Unknown]
